FAERS Safety Report 25447260 (Version 2)
Quarter: 2025Q3

REPORT INFORMATION
  Report Type: Spontaneous
  Country: US (occurrence: US)
  Receive Date: 20250617
  Receipt Date: 20250811
  Transmission Date: 20251020
  Serious: No
  Sender: SANOFI AVENTIS
  Company Number: US-SA-2025SA170854

PATIENT
  Age: 58 Year
  Sex: Female

DRUGS (3)
  1. DUPIXENT [Suspect]
     Active Substance: DUPILUMAB
     Indication: Nasal polyps
     Dosage: 300 MG, QOW
     Route: 058
     Dates: start: 202409
  2. ASTELIN [Concomitant]
     Active Substance: AZELASTINE HYDROCHLORIDE
     Indication: Chronic rhinosinusitis with nasal polyps
     Dosage: 137 MCG NASAL SPRAY TWICE A DAY TWO SPRAYS
     Route: 045
     Dates: start: 202404, end: 20250730
  3. XHANCE [Concomitant]
     Active Substance: FLUTICASONE PROPIONATE
     Indication: Chronic rhinosinusitis with nasal polyps
     Dosage: 93MCGTWICE A DAYTWO SPRAYS
     Route: 045
     Dates: start: 202404

REACTIONS (3)
  - Rash macular [Unknown]
  - Rash pruritic [Recovered/Resolved]
  - Rash [Recovered/Resolved]

NARRATIVE: CASE EVENT DATE: 20250101
